FAERS Safety Report 20181969 (Version 1)
Quarter: 2021Q4

REPORT INFORMATION
  Report Type: Spontaneous
  Country: IT (occurrence: IT)
  Receive Date: 20211214
  Receipt Date: 20211214
  Transmission Date: 20220303
  Serious: Yes (Other)
  Sender: FDA-Public Use
  Company Number: None

PATIENT
  Age: 24 Year
  Sex: Male

DRUGS (1)
  1. RISPERIDONE [Suspect]
     Active Substance: RISPERIDONE
     Indication: Schizophrenia
     Dosage: 3 MG
     Route: 048
     Dates: start: 20211118, end: 20211119

REACTIONS (3)
  - Opisthotonus [Recovering/Resolving]
  - Musculoskeletal stiffness [Recovering/Resolving]
  - Nystagmus [Recovering/Resolving]

NARRATIVE: CASE EVENT DATE: 20211119
